FAERS Safety Report 15164666 (Version 1)
Quarter: 2018Q3

REPORT INFORMATION
  Report Type: Spontaneous
  Country: US (occurrence: US)
  Receive Date: 20180719
  Receipt Date: 20180719
  Transmission Date: 20181010
  Serious: Yes (Other)
  Sender: FDA-Public Use
  Company Number: US-JNJFOC-20180715028

PATIENT
  Sex: Male

DRUGS (3)
  1. AVEENO POSITIVELY RADIANT DAILY MOISTURIZER BROAD SPECTRUM SPF15 [Suspect]
     Active Substance: AVOBENZONE\OCTINOXATE\OCTISALATE
     Indication: PRODUCT USED FOR UNKNOWN INDICATION
     Route: 061
  2. AVEENO POSITIVELY RADIANT MAKEUP REMOVING WIPES USA (COSMETICS) [Suspect]
     Active Substance: COSMETICS
     Indication: PRODUCT USED FOR UNKNOWN INDICATION
     Route: 061
     Dates: start: 20180707, end: 201807
  3. AVEENO POSITIVELY RADIANT OVERNIGHT HYDRATING FACIAL MOISTURIZER USA (COSMETICS) [Suspect]
     Active Substance: COSMETICS
     Indication: PRODUCT USED FOR UNKNOWN INDICATION
     Route: 061

REACTIONS (2)
  - Anaphylactic shock [Unknown]
  - Application site reaction [Unknown]

NARRATIVE: CASE EVENT DATE: 2018
